FAERS Safety Report 7368085-0 (Version None)
Quarter: 2011Q1

REPORT INFORMATION
  Report Type: 
  Country: None (occurrence: None)
  Receive Date: 20110323
  Receipt Date: 20110314
  Transmission Date: 20110831
  Serious: Yes (Death)
  Sender: FDA-Public Use
  Company Number: US-BIOGENIDEC-2011BI009641

PATIENT
  Age: 34 Year
  Sex: Male
  Weight: 72 kg

DRUGS (1)
  1. AVONEX [Suspect]
     Indication: MULTIPLE SCLEROSIS
     Route: 030
     Dates: start: 20090711

REACTIONS (4)
  - COMPLETED SUICIDE [None]
  - BLINDNESS [None]
  - MUSCLE DISORDER [None]
  - CONFUSIONAL STATE [None]
